FAERS Safety Report 5468746-4 (Version None)
Quarter: 2007Q3

REPORT INFORMATION
  Report Type: 
  Country: None (occurrence: None)
  Receive Date: 20070820
  Receipt Date: 20070424
  Transmission Date: 20080115
  Serious: No
  Sender: FDA-Public Use
  Company Number: WAES 0704USA01188

PATIENT
  Age: 65 Year
  Sex: Female
  Weight: 61.6892 kg

DRUGS (6)
  1. JANUVIA [Suspect]
     Indication: TYPE 2 DIABETES MELLITUS
     Dosage: 100 MG/DAILY/PO
     Route: 048
     Dates: start: 20070307
  2. ALTACE [Concomitant]
  3. OMACOR [Concomitant]
  4. ZETIA [Concomitant]
  5. GLYBURIDE [Concomitant]
  6. METFORMIN [Concomitant]

REACTIONS (2)
  - BLOOD GLUCOSE DECREASED [None]
  - RASH MACULAR [None]
